FAERS Safety Report 22099745 (Version 1)
Quarter: 2023Q1

REPORT INFORMATION
  Report Type: Report from Study
  Country: GR (occurrence: GR)
  Receive Date: 20230315
  Receipt Date: 20230315
  Transmission Date: 20230418
  Serious: Yes (Other)
  Sender: FDA-Public Use
  Company Number: GR-ABBVIE-4341602

PATIENT

DRUGS (1)
  1. VENETOCLAX [Suspect]
     Active Substance: VENETOCLAX
     Indication: Acute myeloid leukaemia
     Route: 048
     Dates: start: 202211, end: 202302

REACTIONS (4)
  - Red blood cell transfusion [Unknown]
  - Platelet transfusion [Unknown]
  - Systemic toxicity [Unknown]
  - Therapeutic product effect incomplete [Unknown]
